FAERS Safety Report 7917097-4 (Version None)
Quarter: 2011Q4

REPORT INFORMATION
  Report Type: 
  Country: None (occurrence: None)
  Receive Date: 20111116
  Receipt Date: 20111102
  Transmission Date: 20120403
  Serious: Yes (Other)
  Sender: FDA-Public Use
  Company Number: JP-COVIDIEN/TYCO HEALTHCARE/MALLINCKRODT-T201102513

PATIENT
  Age: 77 Year
  Sex: Female

DRUGS (2)
  1. SODIUM IODIDE I 131 [Suspect]
     Indication: THYROID CANCER
     Dosage: UNK
     Dates: start: 20101101, end: 20101101
  2. SODIUM IODIDE I 131 [Suspect]
     Dosage: UNK
     Dates: start: 20100301, end: 20100301

REACTIONS (8)
  - HYPOCALCAEMIA [None]
  - HYPOKALAEMIA [None]
  - HYPOTHYROIDISM [None]
  - HYPOPHOSPHATAEMIA [None]
  - HYPOPARATHYROIDISM [None]
  - INAPPROPRIATE ANTIDIURETIC HORMONE SECRETION [None]
  - METABOLIC ALKALOSIS [None]
  - HYPONATRAEMIA [None]
